FAERS Safety Report 6382976-9 (Version None)
Quarter: 2009Q3

REPORT INFORMATION
  Report Type: 
  Country: None (occurrence: None)
  Receive Date: 20090928
  Receipt Date: 20090928
  Transmission Date: 20100115
  Serious: No
  Sender: FDA-Public Use
  Company Number: None

PATIENT
  Age: 55 Year
  Sex: Male
  Weight: 100.7 kg

DRUGS (2)
  1. TEKTURNA [Suspect]
     Dosage: 300 MG ONCE PO
     Route: 048
     Dates: start: 20090910
  2. LISINOPRIL [Suspect]
     Dosage: 40 MG ONCE PO
     Route: 048
     Dates: start: 20090910

REACTIONS (1)
  - SWOLLEN TONGUE [None]
